FAERS Safety Report 15206387 (Version 1)
Quarter: 2018Q3

REPORT INFORMATION
  Report Type: Spontaneous
  Country: US (occurrence: US)
  Receive Date: 20180628
  Receipt Date: 20180628
  Transmission Date: 20181010
  Serious: Yes (Other)
  Sender: FDA-Public Use
  Company Number: None

PATIENT
  Sex: Female

DRUGS (4)
  1. TRAMADOL. [Concomitant]
     Active Substance: TRAMADOL
  2. HUMIRA [Suspect]
     Active Substance: ADALIMUMAB
     Indication: HYPERLIPIDAEMIA
     Route: 058
  3. METHOTREXATE. [Concomitant]
     Active Substance: METHOTREXATE
  4. ATORVASTATIN [Concomitant]
     Active Substance: ATORVASTATIN

REACTIONS (2)
  - Psoriasis [None]
  - Neoplasm malignant [None]
